FAERS Safety Report 10161325 (Version 2)
Quarter: 2014Q2

REPORT INFORMATION
  Report Type: Spontaneous
  Country: MX (occurrence: MX)
  Receive Date: 20140509
  Receipt Date: 20140523
  Transmission Date: 20141212
  Serious: Yes (Death)
  Sender: FDA-Public Use
  Company Number: MX-ROCHE-1398330

PATIENT
  Age: 64 Year
  Sex: Male
  Weight: 89 kg

DRUGS (4)
  1. PERTUZUMAB [Suspect]
     Indication: GASTRIC CANCER
     Route: 042
     Dates: start: 201306, end: 201401
  2. TRASTUZUMAB [Suspect]
     Indication: GASTRIC CANCER
     Route: 042
     Dates: start: 201306, end: 201401
  3. DOCETAXEL [Concomitant]
     Indication: GASTRIC CANCER
     Route: 042
     Dates: start: 201306, end: 201401
  4. CARBOPLATIN [Concomitant]
     Indication: GASTRIC CANCER
     Route: 042
     Dates: start: 201306, end: 201401

REACTIONS (1)
  - Disease progression [Fatal]
